FAERS Safety Report 6412443-5 (Version None)
Quarter: 2009Q4

REPORT INFORMATION
  Report Type: 
  Country: None (occurrence: None)
  Receive Date: 20091023
  Receipt Date: 20091015
  Transmission Date: 20100525
  Serious: Yes (Hospitalization, Other)
  Sender: FDA-Public Use
  Company Number: DE-MERCK-0910DEU00065

PATIENT
  Age: 63 Year
  Sex: Female
  Weight: 88 kg

DRUGS (9)
  1. JANUVIA [Suspect]
     Indication: DIABETES MELLITUS
     Route: 048
     Dates: start: 20080101
  2. FLECAINIDE ACETATE [Suspect]
     Indication: ATRIAL FIBRILLATION
     Route: 048
     Dates: start: 20090801, end: 20090917
  3. IRBESARTAN [Concomitant]
     Indication: HYPERTENSION
     Route: 048
     Dates: start: 20050101
  4. BISOPROLOL [Concomitant]
     Indication: HYPERTENSION
     Route: 048
     Dates: start: 20000101
  5. PHENPROCOUMON [Concomitant]
     Indication: ATRIAL FIBRILLATION
     Route: 048
     Dates: start: 20020501
  6. INSULIN GLARGINE [Concomitant]
     Indication: DIABETES MELLITUS
     Route: 051
     Dates: start: 20050101
  7. SIMVASTATIN [Concomitant]
     Indication: HYPERLIPIDAEMIA
     Route: 048
     Dates: start: 20000101
  8. TORSEMIDE [Concomitant]
     Indication: HYPERTENSION
     Route: 048
     Dates: start: 19980101
  9. VERAPAMIL [Concomitant]
     Indication: ATRIAL FIBRILLATION
     Route: 048
     Dates: start: 20020101

REACTIONS (1)
  - ELECTROCARDIOGRAM QT PROLONGED [None]
